FAERS Safety Report 9917793 (Version 2)
Quarter: 2014Q1

REPORT INFORMATION
  Report Type: Spontaneous
  Country: JP (occurrence: JP)
  Receive Date: 20140221
  Receipt Date: 20140226
  Transmission Date: 20141002
  Serious: Yes (Other)
  Sender: FDA-Public Use
  Company Number: JP-SA-2014SA018419

PATIENT
  Age: 63 Year
  Sex: Male

DRUGS (4)
  1. DOCETAXEL [Suspect]
     Indication: GASTRIC CANCER
     Route: 065
     Dates: start: 20120826
  2. DOCETAXEL [Suspect]
     Indication: METASTASES TO LUNG
     Route: 065
     Dates: start: 20120826
  3. PACLITAXEL [Suspect]
     Indication: GASTRIC CANCER
     Route: 065
     Dates: start: 201112, end: 20120522
  4. PACLITAXEL [Suspect]
     Indication: METASTASES TO LIVER
     Route: 065
     Dates: start: 201112, end: 20120522

REACTIONS (5)
  - Cystoid macular oedema [Unknown]
  - Visual acuity reduced [Unknown]
  - Intraocular pressure increased [Unknown]
  - Retinal detachment [Unknown]
  - Off label use [Unknown]
